FAERS Safety Report 5494799-3 (Version None)
Quarter: 2007Q4

REPORT INFORMATION
  Report Type: 
  Country: None (occurrence: None)
  Receive Date: 20071015
  Receipt Date: 20060831
  Transmission Date: 20080405
  Serious: Yes (Other)
  Sender: FDA-Public Use
  Company Number: S06-USA-03505-01

PATIENT
  Age: 41 Year
  Sex: Female

DRUGS (4)
  1. LEXAPRO [Suspect]
     Indication: ANXIETY
     Dosage: 5 MG ONCE PO
     Route: 048
     Dates: start: 20060822, end: 20060822
  2. LEXAPRO [Suspect]
     Indication: DEPRESSION
     Dosage: 5 MG ONCE PO
     Route: 048
     Dates: start: 20060822, end: 20060822
  3. CEFTIN [Suspect]
     Indication: EAR INFECTION
     Dates: start: 20060817, end: 20060822
  4. NASAREL (FLUNISOLIDE) [Concomitant]

REACTIONS (1)
  - HYPERSENSITIVITY [None]
